FAERS Safety Report 4596927-0 (Version None)
Quarter: 2005Q1

REPORT INFORMATION
  Report Type: 
  Country: None (occurrence: None)
  Receive Date: 20050228
  Receipt Date: 20050215
  Transmission Date: 20050727
  Serious: Yes (Other)
  Sender: FDA-Public Use
  Company Number: 2004121920

PATIENT
  Age: 51 Year
  Sex: Female
  Weight: 106.5953 kg

DRUGS (6)
  1. CELEBREX [Suspect]
     Indication: OSTEOARTHRITIS
     Dosage: 400 MG (200 MG, 2 IN 1 D), ORAL
     Route: 048
     Dates: start: 19990101
  2. OMEPRAZOLE [Concomitant]
  3. VENLAFAXINE HCL [Concomitant]
  4. TRAZODONE (TRAZODONE) [Concomitant]
  5. FLUOXETINE HYDROCHLORIDE [Concomitant]
  6. BUPRIPION HYDROCHLORIDE (BUPROPION HYDROCHLORIDE) [Concomitant]

REACTIONS (13)
  - CARDIAC OPERATION [None]
  - CEREBROVASCULAR ACCIDENT [None]
  - DISEASE RECURRENCE [None]
  - EYE DISORDER [None]
  - JOINT SWELLING [None]
  - KNEE ARTHROPLASTY [None]
  - MEMORY IMPAIRMENT [None]
  - PAIN [None]
  - POST PROCEDURAL COMPLICATION [None]
  - PROTEIN C DEFICIENCY [None]
  - PROTEIN TOTAL ABNORMAL [None]
  - SPEECH DISORDER [None]
  - THINKING ABNORMAL [None]
